FAERS Safety Report 7412377-3 (Version None)
Quarter: 2011Q2

REPORT INFORMATION
  Report Type: 
  Country: None (occurrence: None)
  Receive Date: 20110413
  Receipt Date: 20110411
  Transmission Date: 20111010
  Serious: Yes (Death, Other)
  Sender: FDA-Public Use
  Company Number: GB-PFIZER INC-2011040213

PATIENT
  Age: 55 Year
  Sex: Female

DRUGS (2)
  1. LYRICA [Suspect]
  2. DOTHIEPIN [Suspect]

REACTIONS (3)
  - INTENTIONAL SELF-INJURY [None]
  - DRUG LEVEL INCREASED [None]
  - DEATH [None]
